FAERS Safety Report 10448133 (Version 1)
Quarter: 2014Q3

REPORT INFORMATION
  Report Type: Spontaneous
  Country: FR (occurrence: FR)
  Receive Date: 20140911
  Receipt Date: 20140911
  Transmission Date: 20150326
  Serious: Yes (Hospitalization)
  Sender: FDA-Public Use
  Company Number: FR-ASTRAZENECA-2014SE66073

PATIENT
  Age: 20735 Day
  Sex: Female

DRUGS (3)
  1. CARBOCAINE [Suspect]
     Active Substance: MEPIVACAINE HYDROCHLORIDE
     Indication: NERVE BLOCK
     Route: 053
     Dates: start: 20140816, end: 20140816
  2. CATAPRESSAN [Suspect]
     Active Substance: CLONIDINE
     Indication: NERVE BLOCK
     Route: 053
     Dates: start: 20140816, end: 20140816
  3. NAROPEINE [Suspect]
     Active Substance: ROPIVACAINE HYDROCHLORIDE
     Indication: NERVE BLOCK
     Route: 053
     Dates: start: 20140816, end: 20140816

REACTIONS (4)
  - Tachycardia [Recovered/Resolved]
  - Malaise [Recovered/Resolved]
  - Sense of oppression [Recovered/Resolved]
  - Nausea [Recovered/Resolved]

NARRATIVE: CASE EVENT DATE: 20140816
